FAERS Safety Report 4930482-8 (Version None)
Quarter: 2006Q1

REPORT INFORMATION
  Report Type: 
  Country: None (occurrence: None)
  Receive Date: 20060302
  Receipt Date: 20041117
  Transmission Date: 20060701
  Serious: Yes (Hospitalization)
  Sender: FDA-Public Use
  Company Number: US-MERCK-0411USA03032

PATIENT
  Age: 81 Year
  Sex: Female
  Weight: 87 kg

DRUGS (8)
  1. VIOXX [Suspect]
     Route: 048
     Dates: start: 20030101, end: 20040101
  2. LEVOTHYROXINE SODIUM [Concomitant]
     Route: 048
  3. ASPIRIN [Concomitant]
     Route: 048
  4. NEXIUM [Concomitant]
     Route: 048
  5. AMBIEN [Concomitant]
     Route: 065
  6. ATARAX [Concomitant]
     Indication: PRURITUS
     Route: 048
  7. SEREVENT [Concomitant]
     Route: 055
  8. CARBIDOPA AND LEVODOPA [Concomitant]
     Route: 065

REACTIONS (30)
  - ARTERIOSCLEROSIS CORONARY ARTERY [None]
  - ARTHRALGIA [None]
  - BLOOD GLUCOSE INCREASED [None]
  - BLOOD TRIGLYCERIDES INCREASED [None]
  - CHEST PAIN [None]
  - CORONARY ARTERY DISEASE [None]
  - DIZZINESS [None]
  - DRUG INEFFECTIVE [None]
  - DYSPNOEA [None]
  - DYSPNOEA EXERTIONAL [None]
  - EPISTAXIS [None]
  - FALL [None]
  - FLATULENCE [None]
  - HAEMOPTYSIS [None]
  - HYPERTENSION [None]
  - HYPOTENSION [None]
  - HYPOXIA [None]
  - LACERATION [None]
  - LUNG INFILTRATION [None]
  - MITRAL VALVE INCOMPETENCE [None]
  - MYOCARDIAL INFARCTION [None]
  - MYOCARDIAL ISCHAEMIA [None]
  - PNEUMOTHORAX [None]
  - PROCEDURAL PAIN [None]
  - PRODUCTIVE COUGH [None]
  - PULMONARY EMBOLISM [None]
  - SPUTUM DISCOLOURED [None]
  - SPUTUM PURULENT [None]
  - VENTRICULAR HYPERTROPHY [None]
  - VISUAL ACUITY REDUCED [None]
